FAERS Safety Report 8520442-2 (Version None)
Quarter: 2012Q3

REPORT INFORMATION
  Report Type: 
  Country: None (occurrence: None)
  Receive Date: 20120719
  Receipt Date: 20120709
  Transmission Date: 20120928
  Serious: Yes (Other)
  Sender: FDA-Public Use
  Company Number: US-SANOFI-AVENTIS-2012SA048970

PATIENT
  Age: 58 Year
  Sex: Male

DRUGS (3)
  1. LOVENOX [Suspect]
     Indication: SURGERY
     Dates: start: 20120419
  2. LOVENOX [Suspect]
  3. LOVENOX [Suspect]

REACTIONS (3)
  - LUNG INFECTION [None]
  - INJECTION SITE HAEMATOMA [None]
  - PULMONARY EMBOLISM [None]
